FAERS Safety Report 5753321-4 (Version None)
Quarter: 2008Q2

REPORT INFORMATION
  Report Type: 
  Country: None (occurrence: None)
  Receive Date: 20080530
  Receipt Date: 20080519
  Transmission Date: 20081010
  Serious: Yes (Hospitalization)
  Sender: FDA-Public Use
  Company Number: US-TYCO HEALTHCARE/MALLINCKRODT-T200800857

PATIENT

DRUGS (5)
  1. PAMELOR [Suspect]
     Indication: MENTAL DISORDER
     Dosage: 25 MG, QD (1 CAPSULE AT BEDTIME)
     Route: 048
     Dates: start: 20030101
  2. KLONOPIN [Concomitant]
     Indication: PANIC DISORDER
     Dosage: 10 MG, TID
     Route: 048
  3. LYRICA [Concomitant]
     Indication: DRUG USE FOR UNKNOWN INDICATION
     Route: 048
  4. PROTONIX                           /01263201/ [Concomitant]
     Indication: ABDOMINAL PAIN UPPER
     Route: 048
  5. TOPROL-XL [Concomitant]
     Indication: HYPERTENSION
     Route: 048

REACTIONS (5)
  - DYSPEPSIA [None]
  - FALL [None]
  - HIP FRACTURE [None]
  - INSOMNIA [None]
  - LOWER LIMB FRACTURE [None]
